FAERS Safety Report 9143466 (Version 2)
Quarter: 2013Q4

REPORT INFORMATION
  Report Type: Report from Study
  Country: AT (occurrence: AT)
  Receive Date: 20130306
  Receipt Date: 20131218
  Transmission Date: 20140711
  Serious: Yes (Hospitalization)
  Sender: FDA-Public Use
  Company Number: PHHY2013AT020964

PATIENT
  Age: 41 Year
  Sex: Female
  Weight: 69 kg

DRUGS (42)
  1. MYCOPHENOLIC ACID [Suspect]
     Indication: IMMUNOSUPPRESSION
     Dosage: 720 MG, QD
     Route: 048
     Dates: start: 20120702
  2. MYCOPHENOLIC ACID [Suspect]
     Dosage: 1440 MG, QD
     Dates: start: 20120803
  3. MYCOPHENOLIC ACID [Suspect]
     Dosage: 1440 MG, QD
     Dates: start: 20121009
  4. MYCOPHENOLIC ACID [Suspect]
     Dosage: 1080 MG, QD
     Dates: start: 20130102
  5. MYCOPHENOLIC ACID [Suspect]
     Dosage: 720 MG,
     Dates: start: 20130411
  6. MYCOPHENOLIC ACID [Suspect]
     Dosage: 720 MG, QD
     Dates: start: 20130712
  7. VALCYTE [Suspect]
     Indication: CYTOMEGALOVIRUS INFECTION
     Dosage: 450 MG, UNK
     Dates: start: 20120803, end: 20130220
  8. PROGRAF [Concomitant]
     Indication: IMMUNOSUPPRESSION
     Dosage: 3 MG, UNK
     Route: 048
     Dates: start: 201206
  9. PROGRAF [Concomitant]
     Dosage: 5 MG, UNK
     Dates: start: 20120702
  10. PROGRAF [Concomitant]
     Dosage: 8 MG, UNK
     Dates: start: 20120803
  11. PROGRAF [Concomitant]
     Dosage: 7 MG, UNK
     Dates: start: 20121009
  12. PROGRAF [Concomitant]
     Dosage: 3 MG, UNK
     Dates: start: 20130102
  13. PROGRAF [Concomitant]
     Dosage: 4 MG, UNK
     Dates: start: 20130411
  14. PROGRAF [Concomitant]
     Dosage: 6 MG, UNK
     Dates: start: 20130712
  15. APREDNISLON [Concomitant]
     Indication: IMMUNOSUPPRESSION
     Dosage: 10 MG, UNK
     Route: 048
     Dates: start: 201206
  16. EUTHYROX [Concomitant]
     Indication: HYPERPARATHYROIDISM SECONDARY
     Dosage: 75 UG, UNK
     Route: 048
  17. EUTHYROX [Concomitant]
     Indication: HYPERPARATHYROIDISM
     Dosage: 88 UG
     Dates: start: 20120702
  18. EUTHYROX [Concomitant]
     Dosage: 75 MG, UNK
     Dates: start: 20130102
  19. RESONIUM A [Concomitant]
     Indication: HYPERKALAEMIA
     Dosage: 1 DF, UNK
     Route: 048
     Dates: start: 20130212
  20. RESONIUM A [Concomitant]
     Dosage: UNK UKN, UNK
     Dates: start: 20130411
  21. PANTOLOC [Concomitant]
     Indication: PROPHYLAXIS AGAINST GASTROINTESTINAL ULCER
     Dosage: 40 MG, UNK
     Dates: start: 20130102
  22. SUCRALAN [Concomitant]
     Indication: DYSPEPSIA
     Dosage: 3 DF, UNK
     Dates: start: 20120702
  23. SUCRALAN [Concomitant]
     Dosage: 1 DF, ON DEMAND
     Dates: start: 20130102
  24. AMLODIPIN [Concomitant]
     Indication: HYPERTENSION
     Dosage: 5 MG ON DEMAND
     Dates: start: 20120702
  25. AMLODIPIN [Concomitant]
     Dosage: 5 MG, UNK
     Dates: start: 20120713
  26. PREDNISOLON [Concomitant]
     Dosage: 25 MG, UNK
     Dates: start: 20130702
  27. PREDNISOLON [Concomitant]
     Dosage: 15 MG, UNK
     Dates: start: 20120803
  28. PREDNISOLON [Concomitant]
     Dosage: 5 MG, UNK
     Dates: start: 20121009
  29. SERETIDE [Concomitant]
     Indication: BRONCHITIS
     Dosage: UNK UKN, UNK
     Dates: start: 20110314
  30. SERETIDE [Concomitant]
     Dosage: 3 DF, UNK
     Dates: start: 20120803
  31. COTRIBENE [Concomitant]
     Indication: ANTIFUNGAL PROPHYLAXIS
     Dosage: 1X1 MONDAY,WEDNESDAY, FRIDAY
     Dates: start: 20130702
  32. MIMPARA [Concomitant]
     Indication: HYPERPARATHYROIDISM
     Dosage: 60 MG, UNK
  33. CLAVAMOX [Concomitant]
     Indication: ESCHERICHIA INFECTION
     Dosage: 2 G, UNK
     Dates: start: 20120702
  34. CLAVAMOX [Concomitant]
     Indication: DYSURIA
     Dosage: 1 MG, 2X1MG
     Dates: start: 20130712
  35. LOVENOX [Concomitant]
     Indication: THROMBOSIS PROPHYLAXIS
     Dosage: 40 MG, UNK
     Dates: start: 20120702, end: 20120803
  36. ZANTAC [Concomitant]
     Indication: GASTRIC DISORDER
     Dosage: 300 MG, UNK
     Dates: start: 20120702
  37. ENTEROBENE [Concomitant]
     Dosage: 2 DF, UNK
     Dates: start: 20120702, end: 20120803
  38. LENDORM [Concomitant]
     Indication: SLEEP DISORDER
     Dosage: 1 DF, UNK
     Dates: start: 20120702, end: 20120803
  39. XARELTO [Concomitant]
     Indication: THROMBOSIS
     Dosage: 30 MG, UNK
     Dates: start: 20120803, end: 20130102
  40. DILATREND [Concomitant]
     Indication: HYPERTENSION
     Dosage: 12.5 MG, UNK
     Dates: start: 20120803, end: 20130102
  41. SELEXID [Concomitant]
     Indication: URINARY TRACT INFECTION
     Dosage: 3 DF, UNK
     Dates: start: 20120803
  42. CARVEDILOL [Concomitant]
     Indication: HYPERTENSION
     Dosage: 12.5 MG, UNK
     Dates: start: 20130102, end: 20130712

REACTIONS (7)
  - C-reactive protein increased [Recovered/Resolved]
  - Leukopenia [Recovered/Resolved]
  - Neutropenia [Recovered/Resolved]
  - White blood cell count increased [Unknown]
  - Blood creatinine increased [Unknown]
  - Red blood cell count decreased [Unknown]
  - Haemoglobin decreased [Unknown]
